FAERS Safety Report 23139005 (Version 1)
Quarter: 2023Q4

REPORT INFORMATION
  Report Type: Spontaneous
  Country: GB (occurrence: GB)
  Receive Date: 20231102
  Receipt Date: 20231102
  Transmission Date: 20240109
  Serious: Yes (Other)
  Sender: FDA-Public Use
  Company Number: None

PATIENT
  Age: 48 Year
  Sex: Male
  Weight: 65 kg

DRUGS (2)
  1. DOXYCYCLINE [Suspect]
     Active Substance: DOXYCYCLINE
     Indication: Eye pain
     Dosage: 100 MG, 1X/DAY
     Dates: start: 20230921, end: 20231002
  2. ACETAMINOPHEN [Concomitant]
     Active Substance: ACETAMINOPHEN
     Indication: Back pain
     Dosage: OCCASIONAL
     Dates: start: 20230218

REACTIONS (5)
  - Nephrolithiasis [Unknown]
  - Nausea [Recovered/Resolved]
  - Malaise [Unknown]
  - Headache [Unknown]
  - Dysuria [Recovered/Resolved]

NARRATIVE: CASE EVENT DATE: 20230101
